FAERS Safety Report 19071024 (Version 2)
Quarter: 2021Q2

REPORT INFORMATION
  Report Type: Spontaneous
  Country: RU (occurrence: RU)
  Receive Date: 20210330
  Receipt Date: 20210423
  Transmission Date: 20210717
  Serious: Yes (Death, Hospitalization)
  Sender: FDA-Public Use
  Company Number: RU-HIKMA PHARMACEUTICALS USA INC.-RU-H14001-21-01202

PATIENT
  Age: 61 Year
  Sex: Male

DRUGS (1)
  1. CARBOPLATIN. [Suspect]
     Active Substance: CARBOPLATIN
     Indication: NON-SMALL CELL LUNG CANCER
     Dosage: UNKNOWN
     Route: 065

REACTIONS (3)
  - Bronchitis chronic [Fatal]
  - Cor pulmonale chronic [Fatal]
  - Pulmonary oedema [Fatal]

NARRATIVE: CASE EVENT DATE: 20210228
